FAERS Safety Report 17431604 (Version 1)
Quarter: 2020Q1

REPORT INFORMATION
  Report Type: Spontaneous
  Country: US (occurrence: US)
  Receive Date: 20200218
  Receipt Date: 20200218
  Transmission Date: 20200409
  Serious: Yes (Other)
  Sender: FDA-Public Use
  Company Number: US-ABBVIE-20K-163-3276033-00

PATIENT
  Sex: Female

DRUGS (1)
  1. HUMIRA [Suspect]
     Active Substance: ADALIMUMAB
     Indication: PRODUCT USED FOR UNKNOWN INDICATION
     Route: 058

REACTIONS (10)
  - Road traffic accident [Unknown]
  - Arthritis [Unknown]
  - Hip surgery [Unknown]
  - Temporomandibular joint syndrome [Unknown]
  - Ehlers-Danlos syndrome [Unknown]
  - Sjogren^s syndrome [Unknown]
  - Spinal disorder [Unknown]
  - Injury [Unknown]
  - Rheumatoid arthritis [Unknown]
  - Crohn^s disease [Unknown]
